FAERS Safety Report 8900567 (Version 4)
Quarter: 2013Q1

REPORT INFORMATION
  Report Type: Spontaneous
  Country: US (occurrence: US)
  Receive Date: 20121109
  Receipt Date: 20130322
  Transmission Date: 20140127
  Serious: Yes (Hospitalization, Other)
  Sender: FDA-Public Use
  Company Number: US-009507513-1206USA04487

PATIENT
  Sex: Female

DRUGS (10)
  1. FOSAMAX [Suspect]
     Indication: OSTEOPENIA
     Dosage: 70 MG, QW
     Route: 048
     Dates: start: 200305, end: 2008
  2. SYNTHROID [Concomitant]
     Indication: HYPOTHYROIDISM
     Dosage: UNK
     Dates: start: 1960
  3. CALTRATE [Concomitant]
     Dosage: 600 MG, BID
  4. VITAMIN D (UNSPECIFIED) [Concomitant]
     Dosage: 2000 IU, QD
  5. PYRIDOXINE [Concomitant]
     Dosage: 200 MG, QD
  6. ASCORBIC ACID [Concomitant]
     Dosage: 1000 MG, QD
  7. VITAMIN E [Concomitant]
     Dosage: 400 MG, QD
  8. FOLIC ACID [Concomitant]
     Dosage: 400 MICROGRAM, QD
  9. CENTRUM SILVER [Concomitant]
     Dosage: UNK, QD
  10. CHONDROITIN SULFATE SODIUM (+) GLUCOSAMINE SULFATE [Concomitant]
     Dosage: 1500/1200 BID

REACTIONS (13)
  - Femur fracture [Unknown]
  - Fall [Unknown]
  - Intramedullary rod insertion [Unknown]
  - Deep vein thrombosis [Unknown]
  - Vena cava filter insertion [Unknown]
  - Hypertension [Unknown]
  - Limb operation [Unknown]
  - Bronchitis [Unknown]
  - Bronchial hyperreactivity [Unknown]
  - Hyperchlorhydria [Unknown]
  - Osteoporosis [Unknown]
  - Pneumonia [Unknown]
  - Local swelling [Unknown]
